FAERS Safety Report 7573200-X (Version None)
Quarter: 2011Q2

REPORT INFORMATION
  Report Type: 
  Country: None (occurrence: None)
  Receive Date: 20110525
  Receipt Date: 20110422
  Transmission Date: 20111010
  Serious: Yes (Other)
  Sender: FDA-Public Use
  Company Number: 327231

PATIENT
  Age: 58 Year
  Sex: Female

DRUGS (2)
  1. AMARYL (GLUMEPIRIDE) [Concomitant]
  2. VICTOZA [Suspect]
     Indication: PRODUCT USED FOR UNKNOWN INDICATION
     Dates: start: 20110311, end: 20110406

REACTIONS (6)
  - PANCREATITIS ACUTE [None]
  - DYSGEUSIA [None]
  - ERUCTATION [None]
  - PAIN [None]
  - WEIGHT DECREASED [None]
  - OESOPHAGEAL FOOD IMPACTION [None]
